FAERS Safety Report 11021204 (Version 2)
Quarter: 2015Q2

REPORT INFORMATION
  Report Type: Report from Study
  Country: FI (occurrence: FI)
  Receive Date: 20150413
  Receipt Date: 20150529
  Transmission Date: 20150821
  Serious: Yes (Hospitalization)
  Sender: FDA-Public Use
  Company Number: PHHY2015FI040236

PATIENT
  Age: 43 Year
  Sex: Male

DRUGS (6)
  1. JANUMET [Concomitant]
     Active Substance: METFORMIN HYDROCHLORIDE\SITAGLIPTIN PHOSPHATE
     Indication: DIABETES MELLITUS
     Route: 065
  2. LEPONEX [Suspect]
     Active Substance: CLOZAPINE
     Indication: SCHIZOPHRENIA
     Dosage: 200 MG, QD
     Route: 048
     Dates: start: 20150227, end: 20150402
  3. ZYPADHERA [Concomitant]
     Active Substance: OLANZAPINE PAMOATE
     Indication: SCHIZOPHRENIA
     Dosage: 210 MG, (IN 2 WEEK INTERVALS)
     Route: 030
     Dates: start: 2014, end: 201504
  4. HUMALOG [Concomitant]
     Active Substance: INSULIN LISPRO
     Indication: DIABETES MELLITUS
     Dosage: 40 TO 64 U, QD
     Route: 058
     Dates: start: 2014
  5. LANTUS [Concomitant]
     Active Substance: INSULIN GLARGINE
     Indication: DIABETES MELLITUS
     Dosage: 98 U, QD
     Route: 058
     Dates: start: 2014
  6. DEPRAKINE [Concomitant]
     Active Substance: VALPROIC ACID
     Indication: EPILEPSY
     Dosage: 1 G, BID
     Route: 048
     Dates: start: 2014

REACTIONS (7)
  - Fatigue [Unknown]
  - Tachycardia [Not Recovered/Not Resolved]
  - Basophil count increased [Recovered/Resolved]
  - Neutrophil percentage decreased [Not Recovered/Not Resolved]
  - Eosinophilia [Unknown]
  - Dyspnoea at rest [Recovering/Resolving]
  - Lymphocyte percentage increased [Not Recovered/Not Resolved]

NARRATIVE: CASE EVENT DATE: 20150302
